FAERS Safety Report 4649749-6 (Version None)
Quarter: 2005Q2

REPORT INFORMATION
  Report Type: 
  Country: None (occurrence: None)
  Receive Date: 20050427
  Receipt Date: 20050418
  Transmission Date: 20051028
  Serious: Yes (Other)
  Sender: FDA-Public Use
  Company Number: CHPA2005US00854

PATIENT
  Age: 46 Year
  Sex: Female
  Weight: 76.6 kg

DRUGS (3)
  1. TRANSDERM SCOP [Suspect]
     Indication: PROPHYLAXIS AGAINST MOTION SICKNESS
     Dosage: 1.5 MG, Q72H, TRANSDERMAL
     Route: 062
     Dates: start: 20050219, end: 20050221
  2. TRANSDERM SCOP [Suspect]
     Dosage: 1.5 MG, ONCE/SINGLE, TRANSDERMAL
     Route: 062
     Dates: start: 20050227, end: 20050227
  3. ESTRADIOL [Concomitant]

REACTIONS (14)
  - ANGER [None]
  - ANOREXIA [None]
  - APPLICATION SITE ERYTHEMA [None]
  - APPLICATION SITE IRRITATION [None]
  - APPLICATION SITE PRURITUS [None]
  - APPLICATION SITE REACTION [None]
  - FEELING GUILTY [None]
  - HALLUCINATIONS, MIXED [None]
  - INSOMNIA [None]
  - NO REACTION ON PREVIOUS EXPOSURE TO DRUG [None]
  - PANIC DISORDER [None]
  - PARANOIA [None]
  - SKIN DISORDER [None]
  - SUICIDAL IDEATION [None]
